FAERS Safety Report 20663752 (Version 2)
Quarter: 2022Q3

REPORT INFORMATION
  Report Type: Spontaneous
  Country: GB (occurrence: GB)
  Receive Date: 20220401
  Receipt Date: 20220722
  Transmission Date: 20221027
  Serious: Yes (Life-Threatening, Hospitalization, Other)
  Sender: FDA-Public Use
  Company Number: GB-ROCHE-3048873

PATIENT
  Age: 45 Year
  Sex: Female
  Weight: 80 kg

DRUGS (32)
  1. DOCETAXEL [Suspect]
     Active Substance: DOCETAXEL
     Indication: Breast cancer metastatic
     Dosage: UNIT DOSE : 120 MG, FREQUENCY: ONCE IN 3 WEEKS, DURATION: 96 DAYS
     Route: 042
     Dates: start: 20150814, end: 20151117
  2. EXEMESTANE [Suspect]
     Active Substance: EXEMESTANE
     Indication: Breast cancer metastatic
     Dosage: 25 MILLIGRAM DAILY; UNIT DOSE: 25MG, FREQUENCY : ONCE A DAY
     Route: 048
     Dates: start: 20150518
  3. BONVIVA [Suspect]
     Active Substance: IBANDRONATE SODIUM
     Indication: Metastases to bone
     Dosage: 50 MILLIGRAM DAILY; UNIT DOSE: 50MG, FREQUENCY: ONCE A DAY
     Route: 048
     Dates: start: 20150518
  4. HERCEPTIN [Suspect]
     Active Substance: TRASTUZUMAB
     Indication: Breast cancer metastatic
     Dosage: 483 MILLIGRAM DAILY; UNIT DOSE: 483MG, FREQUENCY: ONCE A DAY, DURATION: 1 DAYS
     Route: 042
     Dates: start: 20150803, end: 20150803
  5. HERCEPTIN [Suspect]
     Active Substance: TRASTUZUMAB
     Dosage: 600 MILLIGRAM DAILY; LOADING DOSE, UNIT DOSE: 600MG, FREQUENCY: ONCE A DAY, DURATION: 83 DAYS
     Route: 042
     Dates: start: 20151217, end: 20160308
  6. PERJETA [Suspect]
     Active Substance: PERTUZUMAB
     Indication: Breast cancer metastatic
     Dosage: ONE CYCLE (LOADING DOSE), FREQUENCY: ONCE A DAY
     Route: 042
  7. PERJETA [Suspect]
     Active Substance: PERTUZUMAB
     Dosage: 420 MILLIGRAM DAILY; MAINTAINANCE DOSE, UNIT DOSE: 420MG, FREQUENCY: ONCE A DAY
     Route: 042
     Dates: start: 20160715
  8. PERJETA [Suspect]
     Active Substance: PERTUZUMAB
     Dosage: UNIT DOSE : 420 MG, FREQUENCY: ONCE IN 3 WEEKS, DURATION: 83 DAYS
     Route: 042
     Dates: start: 20151217, end: 20160308
  9. PERJETA [Suspect]
     Active Substance: PERTUZUMAB
     Dosage: LOADING DOSE, UNIT DOSE : 840 MG, DURATION: 1 DAYS
     Route: 042
     Dates: start: 20160623, end: 20160623
  10. PERJETA [Suspect]
     Active Substance: PERTUZUMAB
     Dosage: MAINTAINANCE DOSE, UNIT DOSE : 420 MG, FREQUENCY: ONCE IN 3 WEEKS, DURATION: 85 DAYS
     Route: 042
     Dates: start: 20150825, end: 20151117
  11. TRASTUZUMAB [Suspect]
     Active Substance: TRASTUZUMAB
     Indication: Breast cancer metastatic
     Dosage: UNIT DOSE : 600 MG, FREQUENCY: ONCE IN 3 WEEKS, DURATION: 85 DAYS
     Route: 058
     Dates: start: 20150825, end: 20151117
  12. TRASTUZUMAB [Suspect]
     Active Substance: TRASTUZUMAB
     Route: 058
     Dates: end: 20160308
  13. TRASTUZUMAB [Suspect]
     Active Substance: TRASTUZUMAB
     Dosage: UNIT DOSE : 600 MG, FREQUENCY: ONCE IN 3 WEEKS
     Route: 058
     Dates: start: 20160623
  14. TRASTUZUMAB [Suspect]
     Active Substance: TRASTUZUMAB
     Dosage: 483 MILLIGRAM DAILY; UNIT DOSE: 483 MG, FREQUENCY: ONCE IN A DAY
     Route: 042
     Dates: start: 20150803
  15. TRASTUZUMAB [Suspect]
     Active Substance: TRASTUZUMAB
     Dosage: 600 MILLIGRAM DAILY; UNIT DOSE: 600MG, FREQUENCY: ONCE A DAY
     Route: 042
     Dates: start: 20151217
  16. HYALURONIDASE (HUMAN RECOMBINANT) [Suspect]
     Active Substance: HYALURONIDASE (HUMAN RECOMBINANT)
     Indication: Breast cancer metastatic
     Dosage: UNIT DOSE : 600 MG, FREQUENCY: ONCE IN 3 WEEKS
     Route: 058
     Dates: start: 20160623
  17. HYALURONIDASE (HUMAN RECOMBINANT) [Suspect]
     Active Substance: HYALURONIDASE (HUMAN RECOMBINANT)
     Indication: Product used for unknown indication
     Route: 058
     Dates: end: 20160308
  18. HYALURONIDASE (HUMAN RECOMBINANT) [Suspect]
     Active Substance: HYALURONIDASE (HUMAN RECOMBINANT)
     Dosage: UNIT DOSE : 600 MG, FREQUENCY: ONCE IN 3 WEEKS, DURATION: 85 DAYS
     Route: 058
     Dates: start: 20150825, end: 20151117
  19. HYALURONIDASE (HUMAN RECOMBINANT) [Suspect]
     Active Substance: HYALURONIDASE (HUMAN RECOMBINANT)
     Dosage: FREQUENCY: THRICE IN 1 WEEKS, DURATION: 85 DAYS
     Route: 058
     Dates: start: 20150825, end: 20151117
  20. HYALURONIDASE (HUMAN RECOMBINANT) [Suspect]
     Active Substance: HYALURONIDASE (HUMAN RECOMBINANT)
     Dosage: UNIT DOSE : 600 MG, FREQUENCY: ONCE IN 2 WEEKS
     Route: 058
     Dates: start: 20160623
  21. HYALURONIDASE [Suspect]
     Active Substance: HYALURONIDASE
     Indication: Product used for unknown indication
     Dosage: 600 MG
     Route: 058
     Dates: start: 20160723
  22. BISOPROLOL [Concomitant]
     Active Substance: BISOPROLOL
     Indication: Product used for unknown indication
  23. AMOXICILLIN\CLAVULANATE POTASSIUM [Concomitant]
     Active Substance: AMOXICILLIN\CLAVULANATE POTASSIUM
     Indication: Product used for unknown indication
  24. DENOSUMAB [Concomitant]
     Active Substance: DENOSUMAB
     Indication: Product used for unknown indication
     Dosage: UNIT DOSE: 120MG, FREQUENCY: ONCE IN A MONTHS
     Route: 058
     Dates: start: 20160127
  25. DEXAMETHASONE [Concomitant]
     Active Substance: DEXAMETHASONE
     Indication: Product used for unknown indication
     Route: 048
     Dates: start: 20150803
  26. GENTAMICIN [Concomitant]
     Active Substance: GENTAMICIN
     Indication: Product used for unknown indication
  27. MEROPENEM [Concomitant]
     Active Substance: MEROPENEM
     Indication: Product used for unknown indication
  28. ACETAMINOPHEN [Concomitant]
     Active Substance: ACETAMINOPHEN
     Indication: Product used for unknown indication
  29. RAMIPRIL [Concomitant]
     Active Substance: RAMIPRIL
     Indication: Product used for unknown indication
  30. PIPERACILLIN SODIUM\TAZOBACTAM SODIUM [Concomitant]
     Active Substance: PIPERACILLIN SODIUM\TAZOBACTAM SODIUM
     Indication: Product used for unknown indication
  31. CIPROFLOXACIN [Concomitant]
     Active Substance: CIPROFLOXACIN
     Indication: Product used for unknown indication
  32. BENZYDAMINE [Concomitant]
     Active Substance: BENZYDAMINE
     Indication: Product used for unknown indication
     Route: 065

REACTIONS (22)
  - Ejection fraction decreased [Recovered/Resolved]
  - Ejection fraction decreased [Recovered/Resolved]
  - Rash [Recovered/Resolved]
  - Alopecia [Recovered/Resolved]
  - Diarrhoea [Recovered/Resolved]
  - Hot flush [Unknown]
  - Vascular device infection [Recovered/Resolved]
  - Device related infection [Recovered/Resolved]
  - Sepsis [Unknown]
  - Epistaxis [Recovered/Resolved]
  - Lymphoedema [Recovered/Resolved]
  - Ejection fraction decreased [Recovered/Resolved]
  - Gastrooesophageal reflux disease [Recovered/Resolved]
  - Fatigue [Recovered/Resolved]
  - Influenza like illness [Recovered/Resolved]
  - Mucosal inflammation [Recovered/Resolved]
  - Anaemia [Recovered/Resolved]
  - Gingival swelling [Recovered/Resolved]
  - Vascular device infection [Recovered/Resolved]
  - Osteonecrosis of jaw [Not Recovered/Not Resolved]
  - Fatigue [Unknown]
  - Off label use [Unknown]

NARRATIVE: CASE EVENT DATE: 20150801
